FAERS Safety Report 11853654 (Version 1)
Quarter: 2015Q4

REPORT INFORMATION
  Report Type: Report from Study
  Country: US (occurrence: US)
  Receive Date: 20151219
  Receipt Date: 20151219
  Transmission Date: 20160305
  Serious: No
  Sender: FDA-Public Use
  Company Number: PHEH2015US025803

PATIENT
  Age: 48 Year
  Sex: Male

DRUGS (1)
  1. COSENTYX [Suspect]
     Active Substance: SECUKINUMAB
     Indication: PRODUCT USED FOR UNKNOWN INDICATION
     Dosage: 300 MG, QMO
     Dates: start: 20150616

REACTIONS (3)
  - Malaise [Unknown]
  - Psoriasis [Not Recovered/Not Resolved]
  - Rash [Unknown]

NARRATIVE: CASE EVENT DATE: 20151207
